FAERS Safety Report 8541520-8 (Version None)
Quarter: 2012Q3

REPORT INFORMATION
  Report Type: 
  Country: None (occurrence: None)
  Receive Date: 20120726
  Receipt Date: 20120717
  Transmission Date: 20120928
  Serious: Yes (Other)
  Sender: FDA-Public Use
  Company Number: DE-GE HEALTHCARE MEDICAL DIAGNOSTICS-OMPQ-NO-1207L-0774

PATIENT
  Age: 67 Year

DRUGS (2)
  1. OMNIPAQUE 140 [Suspect]
     Indication: PRODUCT USED FOR UNKNOWN INDICATION
     Route: 013
  2. ACETYLCYSTEINE [Concomitant]

REACTIONS (1)
  - HAEMODIALYSIS [None]
